FAERS Safety Report 10437735 (Version 2)
Quarter: 2014Q4

REPORT INFORMATION
  Report Type: Spontaneous
  Country: GB (occurrence: None)
  Receive Date: 20140904
  Receipt Date: 20141030
  Transmission Date: 20150528
  Serious: Yes (Other)
  Sender: FDA-Public Use
  Company Number: 2512017

PATIENT
  Sex: Female
  Weight: 90 kg

DRUGS (6)
  1. (CITRATE) [Concomitant]
     Active Substance: UNSPECIFIED INGREDIENT
     Dosage: UNKNOWN
     Dates: start: 20140630
  2. NORADRENALINE TARTRATE [Suspect]
     Active Substance: NOREPINEPHRINE BITARTRATE
     Indication: PRODUCT USED FOR UNKNOWN INDICATION
  3. SODIUM CHLORIDE. [Suspect]
     Active Substance: SODIUM CHLORIDE
     Indication: ADVERSE EVENT
     Dosage: 2000 ML MILLILITRE(S) (UNKNOWN) INTRAVENOUS (NOT OTHERWISE SPECIFIED)
     Route: 042
     Dates: start: 20140630
  4. VASOPRESSIN. [Suspect]
     Active Substance: VASOPRESSIN
     Indication: PRODUCT USED FOR UNKNOWN INDICATION
     Dosage: 6 MG MILLIGRAM(S), 1 HOUR, UNKNOWN
  5. SODIUM CHLORIDE. [Suspect]
     Active Substance: SODIUM CHLORIDE
     Indication: DEVICE PRIMING
     Dosage: 2000 ML MILLILITRE(S) (UNKNOWN) INTRAVENOUS (NOT OTHERWISE SPECIFIED)
     Route: 042
     Dates: start: 20140630
  6. (CALCIUM CHLORIDE W/POTASSIUM CHLORI/06440701/) [Suspect]
     Active Substance: CALCIUM CHLORIDE\POTASSIUM CHLORIDE\SODIUM CHLORIDE
     Indication: RENAL REPLACEMENT THERAPY
     Route: 010
     Dates: start: 20140630

REACTIONS (6)
  - Device alarm issue [None]
  - Device failure [None]
  - General physical health deterioration [None]
  - Haemodialysis [None]
  - Blood pressure decreased [None]
  - Haemorrhage [None]

NARRATIVE: CASE EVENT DATE: 20140702
